FAERS Safety Report 20179673 (Version 1)
Quarter: 2021Q4

REPORT INFORMATION
  Report Type: Spontaneous
  Country: ES (occurrence: ES)
  Receive Date: 20211214
  Receipt Date: 20211214
  Transmission Date: 20220303
  Serious: Yes (Hospitalization)
  Sender: FDA-Public Use
  Company Number: None

PATIENT
  Age: 72 Year
  Sex: Male

DRUGS (3)
  1. CARBOPLATIN [Suspect]
     Active Substance: CARBOPLATIN
     Dosage: (2323A)
     Route: 065
     Dates: start: 20210525
  2. ETOPOSIDE [Suspect]
     Active Substance: ETOPOSIDE
     Dosage: (518A)
     Route: 065
     Dates: start: 20210525
  3. ATEZOLIZUMAB [Suspect]
     Active Substance: ATEZOLIZUMAB
     Dosage: (9268A)
     Route: 065
     Dates: start: 20210615

REACTIONS (1)
  - Pancytopenia [Recovered/Resolved]

NARRATIVE: CASE EVENT DATE: 20210701
